FAERS Safety Report 17798899 (Version 1)
Quarter: 2020Q2

REPORT INFORMATION
  Report Type: Report from Study
  Country: None (occurrence: US)
  Receive Date: 20200518
  Receipt Date: 20200518
  Transmission Date: 20200714
  Serious: Yes (Hospitalization)
  Sender: FDA-Public Use
  Company Number: US-ABBVIE-20P-163-3380170-00

PATIENT
  Sex: Female

DRUGS (1)
  1. IMBRUVICA [Suspect]
     Active Substance: IBRUTINIB
     Indication: NON-HODGKIN^S LYMPHOMA
     Route: 048
     Dates: start: 20200131

REACTIONS (6)
  - Muscular weakness [Unknown]
  - Lung disorder [Unknown]
  - Malaise [Unknown]
  - Oral pain [Unknown]
  - Nasopharyngitis [Unknown]
  - Balance disorder [Unknown]
